FAERS Safety Report 19352346 (Version 2)
Quarter: 2021Q2

REPORT INFORMATION
  Report Type: Spontaneous
  Country: US (occurrence: US)
  Receive Date: 20210531
  Receipt Date: 20210617
  Transmission Date: 20210717
  Serious: No
  Sender: FDA-Public Use
  Company Number: US-ASTRAZENECA-2021A423033

PATIENT
  Sex: Male

DRUGS (1)
  1. BREZTRI AEROSPHERE [Suspect]
     Active Substance: BUDESONIDE\FORMOTEROL\GLYCOPYRRONIUM
     Dosage: 160MCG/7.2MCG/4.8MCG, 2 PUFFS TWICE A DAY
     Route: 055
     Dates: start: 202102

REACTIONS (2)
  - Dyspnoea [Unknown]
  - Device malfunction [Unknown]
